FAERS Safety Report 4561408-7 (Version None)
Quarter: 2005Q1

REPORT INFORMATION
  Report Type: 
  Country: None (occurrence: None)
  Receive Date: 20050124
  Receipt Date: 20050114
  Transmission Date: 20050727
  Serious: Yes (Hospitalization, Other)
  Sender: FDA-Public Use
  Company Number: 2005014336

PATIENT
  Age: 84 Year
  Sex: Male
  Weight: 56.246 kg

DRUGS (2)
  1. DETROL LA [Suspect]
     Indication: POLLAKIURIA
     Dosage: 1 CAPSULE (THREE TIMES PER WEEK), ORAL
     Route: 048
     Dates: start: 20020101
  2. FINASTERIDE [Concomitant]

REACTIONS (4)
  - ANURIA [None]
  - BLADDER OPERATION [None]
  - PAIN [None]
  - PROSTATIC OPERATION [None]
